FAERS Safety Report 24072333 (Version 14)
Quarter: 2025Q2

REPORT INFORMATION
  Report Type: Report from Study
  Country: CA (occurrence: CA)
  Receive Date: 20240710
  Receipt Date: 20250416
  Transmission Date: 20250717
  Serious: Yes (Hospitalization)
  Sender: BIOCON
  Company Number: CA-MYLANLABS-2023M1118146

PATIENT

DRUGS (7)
  1. HULIO [Suspect]
     Active Substance: ADALIMUMAB-FKJP
     Indication: Psoriasis
     Route: 058
     Dates: start: 20221218
  2. HULIO [Suspect]
     Active Substance: ADALIMUMAB-FKJP
     Route: 058
  3. HULIO [Suspect]
     Active Substance: ADALIMUMAB-FKJP
     Route: 058
     Dates: start: 202201
  4. HULIO [Suspect]
     Active Substance: ADALIMUMAB-FKJP
     Route: 058
     Dates: start: 20231215
  5. HULIO [Suspect]
     Active Substance: ADALIMUMAB-FKJP
     Route: 058
     Dates: start: 20221218
  6. HULIO [Suspect]
     Active Substance: ADALIMUMAB-FKJP
     Route: 065
     Dates: start: 20250126
  7. HULIO [Suspect]
     Active Substance: ADALIMUMAB-FKJP
     Route: 065
     Dates: start: 20250207

REACTIONS (8)
  - Abdominal hernia [Unknown]
  - Mental disorder [Unknown]
  - Psoriasis [Recovered/Resolved]
  - Therapy interrupted [Unknown]
  - Product substitution issue [Unknown]
  - Inappropriate schedule of product administration [Unknown]
  - Product administered at inappropriate site [Unknown]
  - Circumstance or information capable of leading to medication error [Unknown]
